FAERS Safety Report 11149139 (Version 2)
Quarter: 2015Q2

REPORT INFORMATION
  Report Type: Spontaneous
  Country: AR (occurrence: AR)
  Receive Date: 20150529
  Receipt Date: 20150615
  Transmission Date: 20150821
  Serious: Yes (Other)
  Sender: FDA-Public Use
  Company Number: CHPA2015AR006685

PATIENT
  Sex: Female

DRUGS (6)
  1. NICOTINELL [Suspect]
     Active Substance: NICOTINE
     Indication: SMOKING CESSATION THERAPY
     Route: 062
  2. SEEBRI [Concomitant]
     Active Substance: GLYCOPYRRONIUM
     Indication: EMPHYSEMA
  3. NICOTINELL [Suspect]
     Active Substance: NICOTINE
     Indication: SMOKING CESSATION THERAPY
     Dosage: 2 MG, UNK
     Route: 065
     Dates: start: 2005
  4. SALMETEROL/FLUTICASONPROPIONAAT [Concomitant]
     Active Substance: SALMETEROL
     Indication: PRODUCT USED FOR UNKNOWN INDICATION
     Route: 065
  5. NICOTINELL [Suspect]
     Active Substance: NICOTINE
     Dosage: 4 MG, UNK
     Route: 065
  6. SEEBRI [Concomitant]
     Active Substance: GLYCOPYRRONIUM
     Indication: CHRONIC OBSTRUCTIVE PULMONARY DISEASE
     Route: 065

REACTIONS (5)
  - Malaise [Unknown]
  - Incorrect dose administered [Unknown]
  - Drug dependence [Unknown]
  - Wrong technique in drug usage process [Unknown]
  - Dry mouth [Unknown]
